FAERS Safety Report 6983949-5 (Version None)
Quarter: 2010Q3

REPORT INFORMATION
  Report Type: 
  Country: None (occurrence: None)
  Receive Date: 20100914
  Receipt Date: 20090427
  Transmission Date: 20110219
  Serious: No
  Sender: FDA-Public Use
  Company Number: US-WYE-H09013009

PATIENT
  Age: 44 Year
  Sex: Female
  Weight: 49.94 kg

DRUGS (2)
  1. ADVIL PM [Suspect]
     Indication: PAIN
     Dosage: 2 CAPLETS X 1
     Route: 048
     Dates: start: 20090401, end: 20090401
  2. ADVIL PM [Suspect]
     Indication: INSOMNIA
     Dosage: 2 CAPLETS X1
     Route: 048
     Dates: start: 20090415

REACTIONS (2)
  - DRUG EFFECT DECREASED [None]
  - PAIN IN EXTREMITY [None]
